FAERS Safety Report 24064488 (Version 1)
Quarter: 2024Q3

REPORT INFORMATION
  Report Type: Spontaneous
  Country: CA (occurrence: CA)
  Receive Date: 20240709
  Receipt Date: 20240709
  Transmission Date: 20241016
  Serious: Yes (Other)
  Sender: ROCHE
  Company Number: CA-ROCHE-10000016368

PATIENT
  Sex: Male

DRUGS (1)
  1. AVASTIN [Suspect]
     Active Substance: BEVACIZUMAB
     Indication: Macular oedema
     Route: 050
     Dates: start: 2018

REACTIONS (5)
  - Eye pain [Unknown]
  - Eye disorder [Unknown]
  - Blindness [Unknown]
  - Eye disorder [Unknown]
  - Off label use [Unknown]
